FAERS Safety Report 5746922-0 (Version None)
Quarter: 2008Q2

REPORT INFORMATION
  Report Type: 
  Country: None (occurrence: None)
  Receive Date: 20080522
  Receipt Date: 20080512
  Transmission Date: 20081010
  Serious: Yes (Other)
  Sender: FDA-Public Use
  Company Number: BB-ABBOTT-08P-208-0448218-00

PATIENT
  Sex: Female
  Weight: 24 kg

DRUGS (7)
  1. DEPAKENE [Suspect]
     Indication: GRAND MAL CONVULSION
     Route: 048
     Dates: start: 20030801, end: 20071001
  2. DEPAKENE [Suspect]
     Dosage: 250MG PER 5CC, 4ML 3 TIMES DAILY
     Route: 048
     Dates: start: 20040101
  3. DEPAKENE [Suspect]
     Route: 048
  4. CARBAMAZEPINE [Concomitant]
     Indication: CONVULSION
     Dosage: 100MG PER 5CC, 5ML TWICE DAILY
     Route: 048
     Dates: start: 20021101
  5. CARBAMAZEPINE [Concomitant]
     Route: 048
  6. TOPIRAMATE [Concomitant]
     Indication: CONVULSION
     Route: 048
     Dates: start: 20030801
  7. TOPIRAMATE [Concomitant]
     Route: 048

REACTIONS (35)
  - ABNORMAL BEHAVIOUR [None]
  - ALANINE AMINOTRANSFERASE INCREASED [None]
  - AMINO ACID LEVEL INCREASED [None]
  - ASOCIAL BEHAVIOUR [None]
  - ATAXIA [None]
  - BRUXISM [None]
  - CEREBRAL ATROPHY [None]
  - CEREBRAL DISORDER [None]
  - COORDINATION ABNORMAL [None]
  - DEVELOPMENTAL DELAY [None]
  - ELECTROENCEPHALOGRAM ABNORMAL [None]
  - ENCEPHALOPATHY [None]
  - EYE DISORDER [None]
  - GAIT DISTURBANCE [None]
  - GINGIVAL HYPERPLASIA [None]
  - GRAND MAL CONVULSION [None]
  - HEPATOMEGALY [None]
  - HYPERAMMONAEMIA [None]
  - HYPERMETROPIA [None]
  - HYPOKINESIA [None]
  - HYPOREFLEXIA [None]
  - ILL-DEFINED DISORDER [None]
  - IMPAIRED SELF-CARE [None]
  - LEARNING DISABILITY [None]
  - LIVER FUNCTION TEST ABNORMAL [None]
  - METABOLIC DISORDER [None]
  - MIXED RECEPTIVE-EXPRESSIVE LANGUAGE DISORDER [None]
  - PROFOUND MENTAL RETARDATION [None]
  - RASH [None]
  - SPEECH DISORDER [None]
  - SPEECH DISORDER DEVELOPMENTAL [None]
  - STARING [None]
  - STEREOTYPY [None]
  - TARDIVE DYSKINESIA [None]
  - TREMOR [None]
